FAERS Safety Report 19762384 (Version 1)
Quarter: 2021Q3

REPORT INFORMATION
  Report Type: Report from Study
  Country: None (occurrence: JP)
  Receive Date: 20210827
  Receipt Date: 20210827
  Transmission Date: 20211014
  Serious: Yes (Hospitalization)
  Sender: FDA-Public Use
  Company Number: JP-ABBVIE-21P-087-4050532-00

PATIENT
  Age: 83 Year
  Sex: Male
  Weight: 42.4 kg

DRUGS (25)
  1. PANTOSIN [Concomitant]
     Active Substance: PANTETHINE
     Indication: CONSTIPATION
     Route: 041
     Dates: start: 20201003
  2. TORASEMIDE [Concomitant]
     Active Substance: TORSEMIDE
     Indication: CARDIOVASCULAR EVENT PROPHYLAXIS
     Route: 048
     Dates: start: 20201111
  3. FUROSEMIDE. [Concomitant]
     Active Substance: FUROSEMIDE
     Indication: CARDIOVASCULAR EVENT PROPHYLAXIS
     Route: 048
     Dates: start: 20201202
  4. LOCOID CREAM 0.1% [Concomitant]
     Indication: ERYTHEMA
     Dosage: DOSE; Q.S OINTMENT
     Route: 061
     Dates: start: 20201019
  5. UREA CREAM 105 [NICHIIKO] [Concomitant]
     Indication: DRY SKIN
     Dosage: DOSE; OINTMENT
     Route: 061
     Dates: start: 20210204
  6. YD SOLITA?T NO1 [Concomitant]
     Indication: PROPHYLAXIS
     Route: 042
     Dates: start: 20181125, end: 20181201
  7. VENETOCLAX. [Suspect]
     Active Substance: VENETOCLAX
     Route: 048
     Dates: start: 20190212, end: 20200915
  8. AZACITIDINE. [Suspect]
     Active Substance: AZACITIDINE
     Dosage: DAYS 1?7 OF 28 DAY CYCLE
     Route: 058
     Dates: start: 20190930, end: 20200112
  9. CALONAL [Concomitant]
     Active Substance: ACETAMINOPHEN
     Indication: BACK PAIN
     Route: 048
     Dates: start: 20190104
  10. TAKECAB [Concomitant]
     Active Substance: VONOPRAZAN FUMARATE
     Indication: CHRONIC GASTRITIS
     Route: 048
     Dates: start: 20201003
  11. VENETOCLAX. [Suspect]
     Active Substance: VENETOCLAX
     Route: 048
     Dates: start: 20181222, end: 20190106
  12. VENETOCLAX. [Suspect]
     Active Substance: VENETOCLAX
     Route: 048
     Dates: start: 20210113, end: 20210811
  13. AZACITIDINE. [Suspect]
     Active Substance: AZACITIDINE
     Indication: ACUTE MYELOID LEUKAEMIA
     Dosage: DAYS 1?7 OF 28 DAY CYCLE
     Route: 058
     Dates: start: 20181126, end: 20190815
  14. NOXAFIL [Concomitant]
     Active Substance: POSACONAZOLE
     Indication: ANTIFUNGAL PROPHYLAXIS
     Route: 048
     Dates: start: 20201118
  15. DIAMOX SEQUELS [Concomitant]
     Active Substance: ACETAZOLAMIDE
     Indication: PROPHYLAXIS
     Route: 048
     Dates: start: 20181125, end: 20181201
  16. VENETOCLAX. [Suspect]
     Active Substance: VENETOCLAX
     Route: 048
     Dates: start: 20181127, end: 20181127
  17. VENETOCLAX. [Suspect]
     Active Substance: VENETOCLAX
     Route: 048
     Dates: start: 20181128, end: 20181221
  18. VENETOCLAX. [Suspect]
     Active Substance: VENETOCLAX
     Route: 048
     Dates: start: 20190107, end: 20190121
  19. HIRUDOID LOTION [Concomitant]
     Indication: DRY SKIN
     Dosage: DOSE; AP LIBITUM
     Route: 061
     Dates: start: 20181114
  20. MOHRUS PAP XR [Concomitant]
     Active Substance: KETOPROFEN
     Indication: SCIATICA
     Route: 062
     Dates: start: 20190515
  21. NASEA [Concomitant]
     Active Substance: RAMOSETRON HYDROCHLORIDE
     Indication: PROPHYLAXIS OF NAUSEA AND VOMITING
     Route: 048
     Dates: start: 20210811
  22. VENETOCLAX. [Suspect]
     Active Substance: VENETOCLAX
     Indication: ACUTE MYELOID LEUKAEMIA
     Route: 048
     Dates: start: 20181126, end: 20181126
  23. AZACITIDINE. [Suspect]
     Active Substance: AZACITIDINE
     Dosage: DAYS 1?7 OF 28 DAY CYCLE
     Route: 058
     Dates: start: 20200304
  24. MIYA?BM [Concomitant]
     Active Substance: CLOSTRIDIUM BUTYRICUM SPORES STRAIN M-55
     Indication: INFECTION PROPHYLAXIS
     Route: 048
     Dates: start: 20181113
  25. AMITIZA [Concomitant]
     Active Substance: LUBIPROSTONE
     Indication: CONSTIPATION
     Route: 048
     Dates: start: 20200701

REACTIONS (1)
  - Enterocolitis [Not Recovered/Not Resolved]

NARRATIVE: CASE EVENT DATE: 20210818
